FAERS Safety Report 25976264 (Version 1)
Quarter: 2025Q4

REPORT INFORMATION
  Report Type: Spontaneous
  Country: US (occurrence: US)
  Receive Date: 20251029
  Receipt Date: 20251029
  Transmission Date: 20260118
  Serious: No
  Sender: MYLAN
  Company Number: US-MYLANLABS-2025M1088989

PATIENT

DRUGS (1)
  1. DOCETAXEL [Suspect]
     Active Substance: DOCETAXEL
     Indication: Product used for unknown indication
     Dosage: UNK

REACTIONS (4)
  - Radiation skin injury [Unknown]
  - Hypersensitivity [Unknown]
  - Radiation injury [Recovering/Resolving]
  - Product quality issue [Unknown]
